FAERS Safety Report 8731058 (Version 2)
Quarter: 2012Q4

REPORT INFORMATION
  Report Type: Report from Study
  Country: DE (occurrence: DE)
  Receive Date: 20120820
  Receipt Date: 20121126
  Transmission Date: 20130627
  Serious: Yes (Death, Life-Threatening)
  Sender: FDA-Public Use
  Company Number: DE-MERCK-2010SP027916

PATIENT
  Age: 54 Year
  Sex: Male

DRUGS (2)
  1. POSACONAZOLE [Suspect]
     Indication: PROPHYLAXIS
     Dosage: 400 mg, bid
     Route: 048
     Dates: start: 20100504, end: 20100510
  2. PLACEBO [Suspect]
     Indication: PROPHYLAXIS
     Route: 042
     Dates: start: 20100504, end: 20100504

REACTIONS (2)
  - Hyperbilirubinaemia [Unknown]
  - Septic shock [Fatal]
